FAERS Safety Report 23134689 (Version 1)
Quarter: 2023Q4

REPORT INFORMATION
  Report Type: Spontaneous
  Country: US (occurrence: US)
  Receive Date: 20231101
  Receipt Date: 20231101
  Transmission Date: 20240110
  Serious: Yes (Hospitalization)
  Sender: FDA-Public Use
  Company Number: US-INTRA-CELLULAR THERAPIES, INC.-2023ICT01471

PATIENT
  Age: 30 Year
  Sex: Male
  Weight: 119.27 kg

DRUGS (6)
  1. CAPLYTA [Suspect]
     Active Substance: LUMATEPERONE
     Indication: Bipolar disorder
     Dosage: 42 MG, 1X/DAY AT BEDTIME
     Route: 048
     Dates: start: 20231010, end: 202310
  2. CANNABIS SATIVA SUBSP. INDICA TOP [Suspect]
     Active Substance: CANNABIS SATIVA SUBSP. INDICA TOP
     Dosage: UNK
  3. LITHIUM [Concomitant]
     Active Substance: LITHIUM
     Dosage: UNK
     Dates: end: 202310
  4. LITHIUM [Concomitant]
     Active Substance: LITHIUM
     Dosage: INCREASED WITH HEAVY DOSE
     Dates: start: 202310
  5. PRAZOSIN [Concomitant]
     Active Substance: PRAZOSIN
  6. TRAZODONE [Concomitant]
     Active Substance: TRAZODONE HYDROCHLORIDE

REACTIONS (2)
  - Bipolar I disorder [Recovering/Resolving]
  - Drug abuse [Unknown]
